FAERS Safety Report 6649716-7 (Version None)
Quarter: 2010Q1

REPORT INFORMATION
  Report Type: 
  Country: None (occurrence: None)
  Receive Date: 20100324
  Receipt Date: 20100324
  Transmission Date: 20100710
  Serious: No
  Sender: FDA-Public Use
  Company Number: None

PATIENT
  Age: 46 Year
  Sex: Female
  Weight: 74.8435 kg

DRUGS (3)
  1. SUDAFED 12 HOUR [Suspect]
     Indication: COUGH
     Dosage: TWO PILLS 4 - 6 HRS PO
     Route: 048
     Dates: start: 20100314, end: 20100318
  2. SUDAFED 12 HOUR [Suspect]
     Indication: HEADACHE
     Dosage: TWO PILLS 4 - 6 HRS PO
     Route: 048
     Dates: start: 20100314, end: 20100318
  3. SUDAFED S.A. [Suspect]
     Dosage: TWO TABLETS 4-6 HRS PO
     Route: 048
     Dates: start: 20100317, end: 20100318

REACTIONS (9)
  - ASTHENIA [None]
  - DIZZINESS [None]
  - FATIGUE [None]
  - HEADACHE [None]
  - HYPOPHAGIA [None]
  - INSOMNIA [None]
  - MALAISE [None]
  - NAUSEA [None]
  - VOMITING [None]
